FAERS Safety Report 6619928-7 (Version None)
Quarter: 2010Q1

REPORT INFORMATION
  Report Type: 
  Country: None (occurrence: None)
  Receive Date: 20100309
  Receipt Date: 20100225
  Transmission Date: 20100710
  Serious: No
  Sender: FDA-Public Use
  Company Number: US-B.I. PHARMACEUTICALS,INC./RIDGEFIELD-2010-BP-01477BP

PATIENT
  Age: 59 Year
  Sex: Male
  Weight: 97.1 kg

DRUGS (3)
  1. TWYNSTA [Suspect]
     Indication: HYPERTENSION
     Route: 048
     Dates: start: 20100129, end: 20100129
  2. LOVASTATIN [Concomitant]
     Dosage: 20 MG
     Dates: start: 20091030
  3. TRILIPIX [Concomitant]
     Dosage: 135 MG
     Dates: start: 20100129

REACTIONS (2)
  - HEADACHE [None]
  - MOBILITY DECREASED [None]
